FAERS Safety Report 12074482 (Version 1)
Quarter: 2016Q1

REPORT INFORMATION
  Report Type: Spontaneous
  Country: PE (occurrence: PE)
  Receive Date: 20160212
  Receipt Date: 20160212
  Transmission Date: 20160526
  Serious: Yes (Death)
  Sender: FDA-Public Use
  Company Number: PE-DSJP-DSU-2016-105540

PATIENT

DRUGS (1)
  1. OLMETEC PLUS 40/12.5 [Suspect]
     Active Substance: HYDROCHLOROTHIAZIDE\OLMESARTAN MEDOXOMIL
     Indication: PRODUCT USED FOR UNKNOWN INDICATION
     Dosage: 40/12.5 MG, QD

REACTIONS (1)
  - Pneumonia [Fatal]
